FAERS Safety Report 4401935-6 (Version None)
Quarter: 2004Q3

REPORT INFORMATION
  Report Type: 
  Country: None (occurrence: None)
  Receive Date: 20040720
  Receipt Date: 20040507
  Transmission Date: 20050211
  Serious: Yes (Other)
  Sender: FDA-Public Use
  Company Number: 200413501US

PATIENT
  Age: 66 Year
  Sex: Male

DRUGS (10)
  1. ARAVA [Suspect]
     Indication: RHEUMATOID ARTHRITIS
     Route: 048
  2. METHOTREXATE [Suspect]
     Indication: RHEUMATOID ARTHRITIS
  3. PROSCAR [Concomitant]
     Dosage: DOSE: IN CLINICAL TRIAL
  4. PREDNISONE [Concomitant]
  5. AMBIEN [Concomitant]
     Dosage: DOSE: UNK
  6. VICODIN [Concomitant]
     Dosage: DOSE: UNK
  7. FOLIC ACID [Concomitant]
     Dosage: DOSE: UNK
  8. ELAVIL [Concomitant]
     Dosage: DOSE: UNK
  9. ZOLOFT [Concomitant]
     Dosage: DOSE: UNK
  10. FLOMAX [Concomitant]
     Dosage: DOSE: UNK

REACTIONS (7)
  - AXILLARY PAIN [None]
  - B-CELL LYMPHOMA [None]
  - HIDRADENITIS [None]
  - LEUKOPENIA [None]
  - NON-HODGKIN'S LYMPHOMA STAGE III [None]
  - SUBCUTANEOUS ABSCESS [None]
  - SWELLING [None]
